FAERS Safety Report 13346579 (Version 2)
Quarter: 2017Q1

REPORT INFORMATION
  Report Type: Spontaneous
  Country: IT (occurrence: IT)
  Receive Date: 20170317
  Receipt Date: 20170321
  Transmission Date: 20170428
  Serious: Yes (Disabling, Other)
  Sender: FDA-Public Use
  Company Number: IT-009507513-1703ITA006153

PATIENT
  Age: 35 Year
  Sex: Male

DRUGS (1)
  1. PROPECIA [Suspect]
     Active Substance: FINASTERIDE
     Indication: ALOPECIA
     Dosage: 1 TABLET, QD
     Route: 048
     Dates: start: 20160503, end: 201610

REACTIONS (15)
  - Dry throat [Not Recovered/Not Resolved]
  - Urine flow decreased [Not Recovered/Not Resolved]
  - Paraesthesia oral [Unknown]
  - Fluid retention [Not Recovered/Not Resolved]
  - Gynaecomastia [Not Recovered/Not Resolved]
  - Depression [Unknown]
  - Alopecia [Unknown]
  - Salivary gland pain [Not Recovered/Not Resolved]
  - Hypotonia [Unknown]
  - Bowel movement irregularity [Unknown]
  - Suicidal ideation [Unknown]
  - Dry mouth [Not Recovered/Not Resolved]
  - Fat tissue increased [Unknown]
  - Semen analysis abnormal [Unknown]
  - Fatigue [Unknown]

NARRATIVE: CASE EVENT DATE: 2016
